FAERS Safety Report 5624544-X (Version None)
Quarter: 2008Q1

REPORT INFORMATION
  Report Type: 
  Country: None (occurrence: None)
  Receive Date: 20080213
  Receipt Date: 20080206
  Transmission Date: 20080703
  Serious: Yes (Other)
  Sender: FDA-Public Use
  Company Number: US-WYE-H02530208

PATIENT

DRUGS (1)
  1. EFFEXOR XR [Suspect]
     Route: 048

REACTIONS (1)
  - ELECTROCARDIOGRAM QT INTERVAL ABNORMAL [None]
